FAERS Safety Report 20745413 (Version 1)
Quarter: 2022Q2

REPORT INFORMATION
  Report Type: Spontaneous
  Country: IN (occurrence: IN)
  Receive Date: 20220425
  Receipt Date: 20220425
  Transmission Date: 20220721
  Serious: Yes (Other)
  Sender: FDA-Public Use
  Company Number: IN-SLATE RUN PHARMACEUTICALS-22IN001051

PATIENT

DRUGS (1)
  1. VORICONAZOLE [Suspect]
     Active Substance: VORICONAZOLE
     Indication: Antifungal prophylaxis
     Dosage: UNK

REACTIONS (3)
  - Mucormycosis [Recovered/Resolved]
  - Cytomegalovirus infection [Recovered/Resolved]
  - Off label use [Recovered/Resolved]
